FAERS Safety Report 13381624 (Version 10)
Quarter: 2017Q4

REPORT INFORMATION
  Report Type: Spontaneous
  Country: JP (occurrence: JP)
  Receive Date: 20170329
  Receipt Date: 20171017
  Transmission Date: 20180320
  Serious: Yes (Death, Hospitalization, Other)
  Sender: FDA-Public Use
  Company Number: JP-009507513-1703JPN002358J

PATIENT
  Age: 76 Year
  Sex: Male
  Weight: 58 kg

DRUGS (25)
  1. TSUMURA DAIKENCHUTO EXTRACT GRANULES FOR ETHICAL USE [Concomitant]
     Active Substance: HERBALS
     Dosage: 6 DF, UNK
     Route: 048
     Dates: start: 20170201, end: 20170406
  2. OXINORM (ORGOTEIN) [Concomitant]
     Active Substance: ORGOTEIN
     Dosage: 1 DF, PRN
     Route: 048
     Dates: end: 20170406
  3. LOXOPROFEN [Concomitant]
     Active Substance: LOXOPROFEN
     Dosage: 3 TABLET, UNK
     Route: 048
     Dates: end: 20170406
  4. PREDONINE [Concomitant]
     Active Substance: PREDNISOLONE
     Dosage: 50 MG, UNK
     Route: 065
     Dates: start: 20170409, end: 20170409
  5. PREDONINE [Concomitant]
     Active Substance: PREDNISOLONE
     Dosage: 70 MG, UNK
     Route: 065
     Dates: start: 20170410, end: 20170513
  6. PREDONINE [Concomitant]
     Active Substance: PREDNISOLONE
     Dosage: 8 TABLET, UNK
     Route: 048
     Dates: start: 20170404, end: 20170406
  7. OLOPATADINE HYDROCHLORIDE OD [Concomitant]
     Dosage: 2 TABLET, UNK
     Route: 048
     Dates: start: 20170314, end: 20170406
  8. SOL-MELCORT [Concomitant]
     Active Substance: METHYLPREDNISOLONE SODIUM SUCCINATE
     Dosage: 500 MG, QD
     Route: 051
     Dates: start: 20170323, end: 20170324
  9. SOL-MELCORT [Concomitant]
     Active Substance: METHYLPREDNISOLONE SODIUM SUCCINATE
     Dosage: 1000 MG, BID
     Route: 051
     Dates: start: 20170406, end: 20170408
  10. TAPENTA [Concomitant]
     Active Substance: TAPENTADOL HYDROCHLORIDE
     Dosage: 2 TABLET, UNK
     Route: 048
     Dates: end: 20170406
  11. BAKTAR [Concomitant]
     Active Substance: SULFAMETHOXAZOLE\TRIMETHOPRIM
     Dosage: 2 DF, UNK
     Route: 048
     Dates: end: 20170406
  12. NEXIUM [Concomitant]
     Active Substance: ESOMEPRAZOLE MAGNESIUM
     Dosage: 1 CAPSULE, QD
     Route: 048
     Dates: end: 20170406
  13. SOL-MELCORT [Concomitant]
     Active Substance: METHYLPREDNISOLONE SODIUM SUCCINATE
     Dosage: 125 MG, UNK
     Route: 051
     Dates: start: 20170320, end: 20170320
  14. SOL-MELCORT [Concomitant]
     Active Substance: METHYLPREDNISOLONE SODIUM SUCCINATE
     Dosage: 500 MG, UNK
     Route: 051
     Dates: end: 20170406
  15. MAGNESIUM OXIDE. [Concomitant]
     Active Substance: MAGNESIUM OXIDE
     Dosage: 3 TABLET, UNK
     Route: 048
     Dates: end: 20170406
  16. ZOSYN [Concomitant]
     Active Substance: PIPERACILLIN SODIUM\TAZOBACTAM SODIUM
     Indication: PNEUMONIA BACTERIAL
     Dosage: 4.5 G, TID
     Route: 041
     Dates: start: 20170321, end: 20170331
  17. BISOPROLOL FUMARATE. [Concomitant]
     Active Substance: BISOPROLOL FUMARATE
     Dosage: 1 TABLET, QD
     Route: 048
     Dates: end: 20170406
  18. LYRICA [Concomitant]
     Active Substance: PREGABALIN
     Dosage: 4 CAPSULE, UNK
     Route: 048
     Dates: start: 20170317, end: 20170406
  19. MEPTIN SWINGHALER [Concomitant]
     Dosage: UNK
     Route: 055
     Dates: start: 20170325, end: 20170406
  20. SOLU-MEDROL [Concomitant]
     Active Substance: METHYLPREDNISOLONE SODIUM SUCCINATE
     Dosage: 500 MG, UNK
     Route: 041
     Dates: start: 20170324, end: 20170325
  21. KEYTRUDA [Suspect]
     Active Substance: PEMBROLIZUMAB
     Indication: LUNG SQUAMOUS CELL CARCINOMA STAGE IV
     Dosage: 200 MG, Q3W
     Route: 041
     Dates: start: 20170314, end: 20170413
  22. SOL-MELCORT [Concomitant]
     Active Substance: METHYLPREDNISOLONE SODIUM SUCCINATE
     Indication: INTERSTITIAL LUNG DISEASE
     Dosage: 125 MG, UNK
     Route: 051
     Dates: start: 20170316, end: 20170316
  23. NOVAMIN (PROCHLORPERAZINE MALEATE) [Concomitant]
     Active Substance: PROCHLORPERAZINE MALEATE
     Dosage: 3 TABLET, UNK
     Route: 048
     Dates: end: 20170406
  24. VENOGLOBULIN [Concomitant]
     Active Substance: HUMAN IMMUNOGLOBULIN G
     Dosage: 5 G, UNK
     Route: 065
     Dates: start: 20170406, end: 20170408
  25. AMBISOME [Concomitant]
     Active Substance: AMPHOTERICIN B
     Dosage: 50 MG, UNK
     Route: 042
     Dates: end: 20170513

REACTIONS (5)
  - Organising pneumonia [Recovering/Resolving]
  - Interstitial lung disease [Recovering/Resolving]
  - Diarrhoea [Recovering/Resolving]
  - Pyrexia [Recovering/Resolving]
  - Malignant neoplasm progression [Fatal]

NARRATIVE: CASE EVENT DATE: 20170320
